FAERS Safety Report 24750494 (Version 1)
Quarter: 2024Q4

REPORT INFORMATION
  Report Type: Spontaneous
  Country: CN (occurrence: CN)
  Receive Date: 20241218
  Receipt Date: 20241218
  Transmission Date: 20250114
  Serious: Yes (Hospitalization)
  Sender: JOHNSON AND JOHNSON
  Company Number: CN-BAYER-2024A176109

PATIENT
  Age: 74 Year
  Sex: Male

DRUGS (1)
  1. XARELTO [Suspect]
     Active Substance: RIVAROXABAN
     Indication: Anticoagulant therapy
     Dosage: 15 MG, QD
     Route: 048
     Dates: start: 20241026, end: 20241115

REACTIONS (3)
  - Coagulopathy [Recovering/Resolving]
  - Incorrect dosage administered [Unknown]
  - Product prescribing issue [Unknown]

NARRATIVE: CASE EVENT DATE: 20241026
